FAERS Safety Report 19487459 (Version 2)
Quarter: 2023Q2

REPORT INFORMATION
  Report Type: Report from Study
  Country: US (occurrence: US)
  Receive Date: 20210702
  Receipt Date: 20230501
  Transmission Date: 20230721
  Serious: Yes (Other)
  Sender: FDA-Public Use
  Company Number: US-SA-2021SA215064

PATIENT
  Age: 74 Year
  Sex: Male

DRUGS (12)
  1. DUPILUMAB [Suspect]
     Active Substance: DUPILUMAB
     Indication: Dermatitis atopic
     Dosage: UNK
  2. DUPILUMAB [Suspect]
     Active Substance: DUPILUMAB
     Indication: Eczema
  3. METHOTREXATE [Suspect]
     Active Substance: METHOTREXATE
     Indication: Dermatitis atopic
     Dosage: UNK
  4. METHOTREXATE [Suspect]
     Active Substance: METHOTREXATE
     Indication: Eczema
  5. MYCOPHENOLATE MOFETIL [Concomitant]
     Active Substance: MYCOPHENOLATE MOFETIL
     Indication: Dermatitis atopic
     Dosage: UNK
  6. MYCOPHENOLATE MOFETIL [Concomitant]
     Active Substance: MYCOPHENOLATE MOFETIL
     Indication: Eczema
  7. SECUKINUMAB [Concomitant]
     Active Substance: SECUKINUMAB
     Indication: Dermatitis atopic
     Dosage: UNK
  8. SECUKINUMAB [Concomitant]
     Active Substance: SECUKINUMAB
     Indication: Eczema
  9. ACITRETIN [Concomitant]
     Active Substance: ACITRETIN
     Indication: Dermatitis atopic
     Dosage: UNK
  10. ACITRETIN [Concomitant]
     Active Substance: ACITRETIN
     Indication: Eczema
  11. CORTICOSTEROID NOS [Concomitant]
     Active Substance: CORTICOSTEROID NOS
     Indication: Dermatitis atopic
     Dosage: UNK
     Route: 061
  12. CORTICOSTEROID NOS [Concomitant]
     Active Substance: CORTICOSTEROID NOS
     Indication: Eczema
     Dosage: SYSTEMIC

REACTIONS (4)
  - Cutaneous T-cell lymphoma stage II [Unknown]
  - Abscess [Unknown]
  - Lymphocytic infiltration [Unknown]
  - Off label use [Unknown]
